FAERS Safety Report 10164442 (Version 1)
Quarter: 2014Q2

REPORT INFORMATION
  Report Type: Spontaneous
  Country: US (occurrence: US)
  Receive Date: 20140510
  Receipt Date: 20140510
  Transmission Date: 20141212
  Serious: No
  Sender: FDA-Public Use
  Company Number: US-BRISTOL-MYERS SQUIBB COMPANY-20158598

PATIENT
  Age: 57 Year
  Sex: Male
  Weight: 104.31 kg

DRUGS (3)
  1. BYETTA PEN DISPOSABLE [Suspect]
     Indication: TYPE 2 DIABETES MELLITUS
  2. METFORMIN HCL [Suspect]
     Dosage: 4 TABS
     Route: 048
  3. GLIPIZIDE [Suspect]
     Route: 048

REACTIONS (2)
  - Blood glucose increased [Not Recovered/Not Resolved]
  - Expired product administered [Unknown]
